FAERS Safety Report 7948970-9 (Version None)
Quarter: 2011Q4

REPORT INFORMATION
  Report Type: 
  Country: None (occurrence: None)
  Receive Date: 20111130
  Receipt Date: 20111123
  Transmission Date: 20120403
  Serious: Yes (Other)
  Sender: FDA-Public Use
  Company Number: CA-PFIZER INC-2011286659

PATIENT
  Age: 65 Year
  Sex: Male

DRUGS (3)
  1. XALATAN [Suspect]
     Indication: GLAUCOMA
     Dosage: 1 GTT, 1X/DAY IN LEFT EYE
     Route: 047
     Dates: start: 20100101
  2. DORZOLAMIDE HYDROCHLORIDE AND TIMOLOL MALEATE [Concomitant]
     Dosage: 1 GTT, 2X/DAY
  3. LOTEMAX [Concomitant]
     Dosage: 1 GTT, 2X/WEEK

REACTIONS (3)
  - EYE IRRITATION [None]
  - OCULAR HYPERAEMIA [None]
  - BLINDNESS UNILATERAL [None]
